FAERS Safety Report 7623044-5 (Version None)
Quarter: 2011Q3

REPORT INFORMATION
  Report Type: 
  Country: None (occurrence: None)
  Receive Date: 20110719
  Receipt Date: 20110719
  Transmission Date: 20111222
  Serious: Yes (Hospitalization)
  Sender: FDA-Public Use
  Company Number: None

PATIENT
  Age: 35 Year
  Sex: Female
  Weight: 86 kg

DRUGS (1)
  1. ANAKINRA [Suspect]
     Indication: BEHCET'S SYNDROME
     Dosage: 1.2MG/KG/DAY DAILY ANAKINRA/KINERET

REACTIONS (1)
  - CELLULITIS [None]
